FAERS Safety Report 7485232-0 (Version None)
Quarter: 2011Q2

REPORT INFORMATION
  Report Type: 
  Country: None (occurrence: None)
  Receive Date: 20110517
  Receipt Date: 20110512
  Transmission Date: 20111010
  Serious: Yes (Hospitalization, Other)
  Sender: FDA-Public Use
  Company Number: JP-ABBOTT-11P-087-0713989-00

PATIENT
  Sex: Male

DRUGS (18)
  1. BETAMETHASONE [Suspect]
     Indication: PUSTULAR PSORIASIS
     Route: 048
     Dates: end: 20110225
  2. MECOBALAMIN [Concomitant]
     Indication: PRODUCT USED FOR UNKNOWN INDICATION
     Dosage: AFTER BREAKFAST, LUNCH AND DINNER
     Route: 048
  3. TELMISARTAN [Concomitant]
     Indication: PRODUCT USED FOR UNKNOWN INDICATION
     Route: 048
  4. CLOPIDOGREL SULFATE [Concomitant]
     Indication: PRODUCT USED FOR UNKNOWN INDICATION
     Dosage: AFTER BREAKFAST
     Route: 048
  5. AMLODIPINE BESYLATE [Concomitant]
     Indication: PRODUCT USED FOR UNKNOWN INDICATION
     Dosage: AFTER BREAKFAST
  6. RABEPRAZOLE SODIUM [Concomitant]
     Indication: PRODUCT USED FOR UNKNOWN INDICATION
     Dosage: AFTER BREAKFAST
     Route: 048
  7. BETAMETHASONE [Suspect]
     Route: 048
     Dates: start: 20110226, end: 20110307
  8. ALENDRONATE SODIUM [Concomitant]
     Indication: PRODUCT USED FOR UNKNOWN INDICATION
     Dosage: AT THE TIME OF AWAKENING
     Route: 048
  9. PREGABALIN [Concomitant]
     Indication: PRODUCT USED FOR UNKNOWN INDICATION
     Dosage: AFTER BREAKFAST AND BEFORE SLEEP
     Route: 048
  10. HUMIRA [Suspect]
     Indication: PUSTULAR PSORIASIS
     Route: 058
     Dates: start: 20110218, end: 20110218
  11. HUMIRA [Suspect]
     Dates: start: 20110304
  12. PITAVASTATIN CALCIUM [Concomitant]
     Indication: PRODUCT USED FOR UNKNOWN INDICATION
     Dosage: AFTER BREAKFAST
     Route: 048
  13. WHITE PETROLATUM [Concomitant]
     Indication: PRODUCT USED FOR UNKNOWN INDICATION
     Route: 061
  14. ETRETINATE [Concomitant]
     Indication: PUSTULAR PSORIASIS
     Dosage: DAILY DOSE: 40MG
  15. LOXOPROFEN SODIUM HYDRATE [Concomitant]
     Indication: PRODUCT USED FOR UNKNOWN INDICATION
     Dosage: AFTER BREAKFAST AND DINNER
     Route: 048
  16. CEFDINIR [Concomitant]
     Indication: PRODUCT USED FOR UNKNOWN INDICATION
  17. ECABET SODIUM HYDRATE [Concomitant]
     Indication: PRODUCT USED FOR UNKNOWN INDICATION
     Dosage: AFTER BREAKFAST AND DINNER
     Route: 048
  18. ETRETINATE [Concomitant]
     Dosage: AFTER BREAKFAST
     Route: 048

REACTIONS (9)
  - ANGINA PECTORIS [None]
  - OEDEMA [None]
  - DYSPNOEA EXERTIONAL [None]
  - BRONCHOPNEUMONIA [None]
  - MYOCARDITIS [None]
  - AORTIC VALVE INCOMPETENCE [None]
  - CORONARY ARTERY STENOSIS [None]
  - PYREXIA [None]
  - C-REACTIVE PROTEIN ABNORMAL [None]
